FAERS Safety Report 10866546 (Version 2)
Quarter: 2015Q1

REPORT INFORMATION
  Report Type: Spontaneous
  Country: GB (occurrence: None)
  Receive Date: 20150220
  Receipt Date: 20150227
  Transmission Date: 20150721
  Serious: No
  Sender: FDA-Public Use
  Company Number: GB-LHC-2015022

PATIENT
  Sex: Male

DRUGS (1)
  1. COMPRESSED MEDICAL OXYGEN (OXYGEN) (GAS FOR INHALATION) (VERUM) [Suspect]
     Active Substance: OXYGEN
     Dosage: 2 -1PM/1 HPD
     Route: 055

REACTIONS (2)
  - Dyspnoea [None]
  - Device defective [None]

NARRATIVE: CASE EVENT DATE: 201412
